FAERS Safety Report 6405578-4 (Version None)
Quarter: 2009Q4

REPORT INFORMATION
  Report Type: 
  Country: None (occurrence: None)
  Receive Date: 20091014
  Receipt Date: 20090930
  Transmission Date: 20100525
  Serious: Yes (Other)
  Sender: FDA-Public Use
  Company Number: 20090435

PATIENT
  Age: 52 Year
  Sex: Male

DRUGS (2)
  1. AMINOPHYLLIN [Suspect]
     Indication: DRUG THERAPY
     Dosage: 125 MG
  2. DIPYRIDAMOLE [Concomitant]

REACTIONS (2)
  - ANGINA PECTORIS [None]
  - ELECTROCARDIOGRAM ST SEGMENT ELEVATION [None]
